FAERS Safety Report 5941161-2 (Version None)
Quarter: 2008Q4

REPORT INFORMATION
  Report Type: 
  Country: None (occurrence: None)
  Receive Date: 20081104
  Receipt Date: 20081031
  Transmission Date: 20090506
  Serious: Yes (Other)
  Sender: FDA-Public Use
  Company Number: US-GILEAD-2008-0018232

PATIENT
  Sex: Female
  Weight: 56.296 kg

DRUGS (19)
  1. LETAIRIS [Suspect]
     Indication: PULMONARY ARTERIAL HYPERTENSION
     Route: 048
     Dates: start: 20080714, end: 20080903
  2. REMODULIN [Concomitant]
  3. REVATIO [Concomitant]
  4. COUMADIN [Concomitant]
  5. DIGOXIN [Concomitant]
  6. LASIX [Concomitant]
  7. LANTUS [Concomitant]
  8. POTASSIUM CHLORIDE [Concomitant]
  9. VICODIN [Concomitant]
  10. AMITRIPTYLINE HCL [Concomitant]
  11. LOPERAMIDE HCL [Concomitant]
  12. CLONIDINE [Concomitant]
     Route: 061
  13. LECITHIN [Concomitant]
     Route: 061
  14. KETOPROFEN [Concomitant]
     Route: 061
  15. AMITRIPTYLINE HCL [Concomitant]
     Route: 061
  16. GABAPENTIN [Concomitant]
     Route: 061
  17. LIDOCAINE [Concomitant]
     Route: 061
  18. POLOXAMER [Concomitant]
  19. KETAMINE HCL [Concomitant]
     Route: 061

REACTIONS (2)
  - HAEMOGLOBIN DECREASED [None]
  - WHITE BLOOD CELL COUNT DECREASED [None]
